FAERS Safety Report 20430371 (Version 1)
Quarter: 2022Q1

REPORT INFORMATION
  Report Type: Report from Study
  Country: FR (occurrence: FR)
  Receive Date: 20220204
  Receipt Date: 20220204
  Transmission Date: 20220423
  Serious: Yes (Other)
  Sender: FDA-Public Use
  Company Number: FR-SERVIER-S20006935

PATIENT

DRUGS (8)
  1. PEGASPARGASE [Suspect]
     Active Substance: PEGASPARGASE
     Indication: Acute lymphocytic leukaemia
     Dosage: 1500 IU, D26
     Route: 042
     Dates: start: 20200522
  2. DEXAMETHASONE [Suspect]
     Active Substance: DEXAMETHASONE
     Indication: Acute lymphocytic leukaemia
     Dosage: 7.5 MG, D1-D15
     Route: 048
     Dates: start: 20200608, end: 20200612
  3. METHOTREXATE [Suspect]
     Active Substance: METHOTREXATE
     Indication: Acute lymphocytic leukaemia
     Dosage: 30 MG, D8, D15
     Route: 048
     Dates: start: 20200615
  4. METHOTREXATE [Suspect]
     Active Substance: METHOTREXATE
     Dosage: 12 MG, D8
     Route: 037
     Dates: start: 20200615
  5. MERCAPTOPURINE [Suspect]
     Active Substance: MERCAPTOPURINE
     Indication: Acute lymphocytic leukaemia
     Dosage: 60 MG, D1-D15
     Route: 048
     Dates: start: 20200608, end: 20200615
  6. VINCRISTINE [Suspect]
     Active Substance: VINCRISTINE
     Indication: Acute lymphocytic leukaemia
     Dosage: 1.8 MG, D1, D8
     Route: 048
     Dates: start: 20200608
  7. TN UNSPECIFIED [Concomitant]
     Indication: Prophylaxis against gastrointestinal ulcer
     Dosage: 20 MG
     Dates: start: 20200504, end: 20200531
  8. TN UNSEPCIFIED [Concomitant]
     Indication: Infection prophylaxis
     Dosage: 800 MG
     Route: 048
     Dates: start: 20200504

REACTIONS (1)
  - Gamma-glutamyltransferase increased [Recovering/Resolving]

NARRATIVE: CASE EVENT DATE: 20200615
